FAERS Safety Report 24429488 (Version 1)
Quarter: 2024Q4

REPORT INFORMATION
  Report Type: Spontaneous
  Country: US (occurrence: US)
  Receive Date: 20241012
  Receipt Date: 20241012
  Transmission Date: 20250114
  Serious: Yes (Death, Hospitalization, Other)
  Sender: CELLTRION
  Company Number: US-CELLTRION INC.-2024US012950

PATIENT

DRUGS (2)
  1. INFLIXIMAB [Suspect]
     Active Substance: INFLIXIMAB
     Indication: Colitis
     Dosage: UNK
  2. INFLIXIMAB [Suspect]
     Active Substance: INFLIXIMAB
     Dosage: ADMINISTERED 3 WEEKS AFTER THE FIRST DOSE

REACTIONS (2)
  - Pneumococcal sepsis [Fatal]
  - Therapeutic product effective for unapproved indication [Unknown]
